FAERS Safety Report 10069854 (Version 2)
Quarter: 2014Q2

REPORT INFORMATION
  Report Type: Spontaneous
  Country: US (occurrence: US)
  Receive Date: 20140410
  Receipt Date: 20140519
  Transmission Date: 20141212
  Serious: No
  Sender: FDA-Public Use
  Company Number: US-PFIZER INC-2014100189

PATIENT
  Sex: Female

DRUGS (2)
  1. LYRICA [Suspect]
     Indication: NERVE INJURY
     Dosage: UNK
     Dates: start: 201403
  2. LYRICA [Suspect]
     Indication: FIBROMYALGIA

REACTIONS (3)
  - Chapped lips [Unknown]
  - Oral herpes [Unknown]
  - Somnolence [Unknown]
